FAERS Safety Report 5139491-X (Version None)
Quarter: 2006Q4

REPORT INFORMATION
  Report Type: 
  Country: None (occurrence: None)
  Receive Date: 20061024
  Receipt Date: 20061011
  Transmission Date: 20070319
  Serious: Yes (Life-Threatening, Hospitalization, Other)
  Sender: FDA-Public Use
  Company Number: 2006125239

PATIENT
  Sex: Male

DRUGS (1)
  1. NARDIL [Suspect]
     Indication: DEPRESSION
     Dosage: 45 MG (15 MG, 3 IN 1 D)
     Dates: start: 19980101, end: 20060901

REACTIONS (5)
  - AGITATION [None]
  - BLOOD PRESSURE INCREASED [None]
  - HEADACHE [None]
  - SINUSITIS [None]
  - STENT PLACEMENT [None]
